FAERS Safety Report 16871963 (Version 7)
Quarter: 2020Q2

REPORT INFORMATION
  Report Type: Report from Study
  Country: US (occurrence: US)
  Receive Date: 20191001
  Receipt Date: 20200511
  Transmission Date: 20200713
  Serious: Yes (Other)
  Sender: FDA-Public Use
  Company Number: US-GLAXOSMITHKLINE-2019-TSO01122-US

PATIENT
  Age: 63 Year
  Sex: Female

DRUGS (7)
  1. NIRAPARIB [Suspect]
     Active Substance: NIRAPARIB
     Dosage: 200 MG DAILY
     Route: 048
     Dates: start: 20191204
  2. NIRAPARIB [Suspect]
     Active Substance: NIRAPARIB
     Dosage: 100 MG, QD(TAKE 2 CAPSULE BY MOUTH ONE TIME DAILY)
     Route: 048
  3. NIRAPARIB [Suspect]
     Active Substance: NIRAPARIB
     Dosage: 300 MG, QD
     Route: 048
  4. NIRAPARIB [Suspect]
     Active Substance: NIRAPARIB
     Dosage: 200 MG, QD
     Route: 048
     Dates: start: 20190306
  5. NIRAPARIB [Suspect]
     Active Substance: NIRAPARIB
     Dosage: 100 MG, QD
  6. NIRAPARIB [Suspect]
     Active Substance: NIRAPARIB
     Dosage: 200 MG, QD
     Route: 048
  7. NIRAPARIB [Suspect]
     Active Substance: NIRAPARIB
     Indication: PRODUCT USED FOR UNKNOWN INDICATION
     Dosage: 300 MG, QD
     Route: 048
     Dates: start: 20190206

REACTIONS (20)
  - Clostridium difficile infection [Unknown]
  - White blood cell count decreased [Unknown]
  - Nasopharyngitis [Unknown]
  - Skin laceration [Unknown]
  - Product dose omission [Unknown]
  - Muscle spasms [Unknown]
  - Weight decreased [Unknown]
  - Balance disorder [Unknown]
  - Malaise [Unknown]
  - Vomiting [Unknown]
  - Impaired driving ability [Unknown]
  - Product intolerance [Unknown]
  - Fall [Unknown]
  - Thrombocytopenia [Unknown]
  - Product dose omission [Unknown]
  - Rash [Unknown]
  - Nausea [Unknown]
  - Fatigue [Unknown]
  - Cyanosis [Unknown]
  - Feeding disorder [Unknown]

NARRATIVE: CASE EVENT DATE: 2019
